FAERS Safety Report 10713254 (Version 1)
Quarter: 2015Q1

REPORT INFORMATION
  Report Type: Spontaneous
  Country: US (occurrence: None)
  Receive Date: 20150114
  Receipt Date: 20150114
  Transmission Date: 20150721
  Serious: Yes (Hospitalization)
  Sender: FDA-Public Use
  Company Number: None

PATIENT
  Age: 63 Year
  Sex: Male
  Weight: 69.5 kg

DRUGS (2)
  1. LORAZEPAM. [Suspect]
     Active Substance: LORAZEPAM
     Indication: PAIN
     Route: 048
     Dates: start: 20140922, end: 20141206
  2. BUPRENORPHINE [Suspect]
     Active Substance: BUPRENORPHINE
     Indication: PAIN
     Route: 060
     Dates: start: 20141205, end: 20141206

REACTIONS (5)
  - Hepatic encephalopathy [None]
  - Sedation [None]
  - Lethargy [None]
  - Confusional state [None]
  - Asterixis [None]

NARRATIVE: CASE EVENT DATE: 20141204
